FAERS Safety Report 7291234-X (Version None)
Quarter: 2011Q1

REPORT INFORMATION
  Report Type: 
  Country: None (occurrence: None)
  Receive Date: 20110214
  Receipt Date: 20110204
  Transmission Date: 20110831
  Serious: Yes (Other)
  Sender: FDA-Public Use
  Company Number: US-GENZYME-CLOF-1001423

PATIENT
  Sex: Male

DRUGS (12)
  1. INSULIN [Concomitant]
     Indication: PRODUCT USED FOR UNKNOWN INDICATION
     Dosage: UNK
     Route: 065
     Dates: start: 20061001
  2. PROCHLORPERAZINE [Concomitant]
     Indication: VOMITING
  3. PLATELETS [Concomitant]
     Indication: THROMBOCYTOPENIA
     Dosage: 1 U, ONCE
     Route: 065
     Dates: start: 20061001
  4. ONDANSETRON [Concomitant]
     Indication: NAUSEA
     Dosage: UNK
     Route: 065
     Dates: start: 20061001
  5. ONDANSETRON [Concomitant]
     Indication: VOMITING
  6. PROCRIT [Concomitant]
     Indication: ANAEMIA
     Dosage: UNK
     Route: 065
     Dates: start: 20061001
  7. GABAPENTIN [Concomitant]
     Indication: NEUROPATHY PERIPHERAL
     Dosage: UNK
     Route: 065
     Dates: start: 20061001
  8. FENTANYL [Concomitant]
     Indication: ANALGESIC THERAPY
     Dosage: 75 UNK, QID
     Route: 065
     Dates: start: 20061001
  9. MORPHINE [Concomitant]
     Indication: ANALGESIC THERAPY
     Dosage: 1 MG, QID
     Route: 065
     Dates: start: 20061001
  10. LANTUS [Concomitant]
     Indication: DIABETES MELLITUS
     Dosage: 15-20 U, UNK
     Route: 065
     Dates: start: 20061001
  11. CLOLAR [Suspect]
     Indication: B-CELL LYMPHOMA
     Dosage: 12.6 MG, UNK
     Route: 042
     Dates: start: 20060101
  12. PROCHLORPERAZINE [Concomitant]
     Indication: NAUSEA
     Dosage: UNK
     Route: 065
     Dates: start: 20061001

REACTIONS (4)
  - LEUKOPENIA [None]
  - ANAEMIA [None]
  - THROMBOCYTOPENIA [None]
  - BONE MARROW FAILURE [None]
